FAERS Safety Report 8622167-1 (Version None)
Quarter: 2012Q3

REPORT INFORMATION
  Report Type: 
  Country: None (occurrence: None)
  Receive Date: 20120826
  Receipt Date: 20091001
  Transmission Date: 20120928
  Serious: Yes (Hospitalization, Other)
  Sender: FDA-Public Use
  Company Number: PHHY2009CA16657

PATIENT
  Sex: Male

DRUGS (1)
  1. SANDOSTATIN LAR [Suspect]
     Indication: NEUROENDOCRINE CARCINOMA
     Dosage: 30 MG
     Route: 030
     Dates: start: 20080613

REACTIONS (3)
  - PLATELET COUNT DECREASED [None]
  - TESTICULAR TORSION [None]
  - BLOOD PRESSURE DECREASED [None]
